FAERS Safety Report 13007253 (Version 1)
Quarter: 2016Q4

REPORT INFORMATION
  Report Type: Spontaneous
  Country: US (occurrence: US)
  Receive Date: 20161207
  Receipt Date: 20161207
  Transmission Date: 20170207
  Serious: Yes (Hospitalization)
  Sender: FDA-Public Use
  Company Number: US-SIGMA-TAU US-2016STPI000961

PATIENT
  Age: 22 Year
  Sex: Female

DRUGS (22)
  1. LEVOCARNITINE. [Suspect]
     Active Substance: LEVOCARNITINE
     Indication: CARNITINE DEFICIENCY
  2. PROCALAMINE                        /07403401/ [Concomitant]
     Indication: PRODUCT USED FOR UNKNOWN INDICATION
  3. Q-TUSSIN DM [Concomitant]
     Indication: PRODUCT USED FOR UNKNOWN INDICATION
  4. ERYTHROMYCIN                       /00020902/ [Concomitant]
     Active Substance: ERYTHROMYCIN
     Indication: PRODUCT USED FOR UNKNOWN INDICATION
     Route: 061
  5. AZITHROMYCIN ANHYDROUS. [Concomitant]
     Active Substance: AZITHROMYCIN ANHYDROUS
  6. ONDANSETRON [Concomitant]
     Active Substance: ONDANSETRON
     Indication: PRODUCT USED FOR UNKNOWN INDICATION
  7. VITAMIN D                          /00107901/ [Concomitant]
     Active Substance: ERGOCALCIFEROL
     Indication: PRODUCT USED FOR UNKNOWN INDICATION
  8. ENULOSE [Concomitant]
     Active Substance: LACTULOSE
  9. DIFFERIN XP [Concomitant]
     Indication: PRODUCT USED FOR UNKNOWN INDICATION
  10. NASOCORT [Concomitant]
     Active Substance: BUDESONIDE
     Indication: PRODUCT USED FOR UNKNOWN INDICATION
  11. PANTOPRAZOLE [Concomitant]
     Active Substance: PANTOPRAZOLE SODIUM
     Indication: PRODUCT USED FOR UNKNOWN INDICATION
  12. CYSTARAN [Suspect]
     Active Substance: CYSTEAMINE HYDROCHLORIDE
     Indication: AMINO ACID METABOLISM DISORDER
  13. ARTIFICIAL TEARS                   /00222401/ [Concomitant]
     Indication: PRODUCT USED FOR UNKNOWN INDICATION
  14. LIALDA [Concomitant]
     Active Substance: MESALAMINE
     Indication: PRODUCT USED FOR UNKNOWN INDICATION
  15. LORATADINE. [Concomitant]
     Active Substance: LORATADINE
     Indication: PRODUCT USED FOR UNKNOWN INDICATION
  16. MERCAPTOPURINE. [Concomitant]
     Active Substance: MERCAPTOPURINE
     Indication: PRODUCT USED FOR UNKNOWN INDICATION
  17. HYDROCORTISONE                     /00028602/ [Concomitant]
     Active Substance: HYDROCORTISONE
     Indication: PRODUCT USED FOR UNKNOWN INDICATION
  18. CLINDAMYCIN                        /00166004/ [Concomitant]
     Indication: PRODUCT USED FOR UNKNOWN INDICATION
     Route: 061
  19. PROCYSBI DELAYED-RELEASE [Suspect]
     Active Substance: CYSTEAMINE BITARTRATE
  20. POLYETHYLENE GLYCOL [Concomitant]
     Active Substance: POLYETHYLENE GLYCOLS
     Indication: PRODUCT USED FOR UNKNOWN INDICATION
  21. AMOXICILLIN. [Concomitant]
     Active Substance: AMOXICILLIN
     Indication: PRODUCT USED FOR UNKNOWN INDICATION
  22. ERYTHROMYCIN                       /00020902/ [Concomitant]
     Active Substance: ERYTHROMYCIN
     Dosage: UNK
     Route: 047

REACTIONS (3)
  - Pyrexia [None]
  - Nausea [None]
  - Vomiting [None]

NARRATIVE: CASE EVENT DATE: 20161123
